FAERS Safety Report 17083855 (Version 1)
Quarter: 2019Q4

REPORT INFORMATION
  Report Type: Report from Study
  Country: US (occurrence: US)
  Receive Date: 20191127
  Receipt Date: 20191127
  Transmission Date: 20200122
  Serious: Yes (Other)
  Sender: FDA-Public Use
  Company Number: NVSC2019US050267

PATIENT
  Age: 33 Year
  Sex: Male
  Weight: 114.29 kg

DRUGS (1)
  1. ENTRESTO [Suspect]
     Active Substance: SACUBITRIL\VALSARTAN
     Indication: CARDIAC FAILURE CHRONIC
     Dosage: 200 MG, BID
     Route: 048
     Dates: start: 20191107

REACTIONS (3)
  - Angina pectoris [Unknown]
  - Fear [Unknown]
  - Depression [Unknown]

NARRATIVE: CASE EVENT DATE: 20191122
